FAERS Safety Report 9720188 (Version 1)
Quarter: 2013Q4

REPORT INFORMATION
  Report Type: Report from Study
  Country: US (occurrence: US)
  Receive Date: 20131129
  Receipt Date: 20131129
  Transmission Date: 20140711
  Serious: Yes (Other)
  Sender: FDA-Public Use
  Company Number: US-ROCHE-1310235

PATIENT
  Sex: Female

DRUGS (1)
  1. CELLCEPT [Suspect]
     Indication: SCLERODERMA
     Route: 048

REACTIONS (3)
  - Fall [Unknown]
  - Haematoma [Unknown]
  - Pruritus [Unknown]
